FAERS Safety Report 15826512 (Version 1)
Quarter: 2019Q1

REPORT INFORMATION
  Report Type: Spontaneous
  Country: US (occurrence: US)
  Receive Date: 20190115
  Receipt Date: 20190115
  Transmission Date: 20190417
  Serious: Yes (Life-Threatening, Disabling)
  Sender: FDA-Public Use
  Company Number: None

PATIENT
  Age: 50 Year
  Sex: Male
  Weight: 81 kg

DRUGS (2)
  1. KLONOPIN [Suspect]
     Active Substance: CLONAZEPAM
     Indication: STRESS
     Dates: start: 20100101, end: 20140828
  2. KLONOPIN [Suspect]
     Active Substance: CLONAZEPAM
     Indication: HYPERTENSION
     Dates: start: 20100101, end: 20140828

REACTIONS (4)
  - Economic problem [None]
  - Drug withdrawal syndrome [None]
  - Loss of employment [None]
  - Adult failure to thrive [None]

NARRATIVE: CASE EVENT DATE: 20150101
